FAERS Safety Report 20351285 (Version 1)
Quarter: 2022Q1

REPORT INFORMATION
  Report Type: Spontaneous
  Country: US (occurrence: None)
  Receive Date: 20220118
  Receipt Date: 20220118
  Transmission Date: 20220423
  Serious: Yes (Life-Threatening, Other)
  Sender: FDA-Public Use
  Company Number: None

PATIENT
  Age: 86 Year
  Sex: Female
  Weight: 54.4 kg

DRUGS (9)
  1. REMDESIVIR [Suspect]
     Active Substance: REMDESIVIR
     Indication: COVID-19 pneumonia
     Dosage: FREQUENCY : ONCE;?
     Route: 041
     Dates: start: 20220116, end: 20220116
  2. REMDESIVIR [Suspect]
     Active Substance: REMDESIVIR
     Indication: COVID-19 pneumonia
     Dosage: FREQUENCY : DAILY;?
     Route: 041
     Dates: start: 20220117, end: 20220117
  3. ACETAMINOPHEN [Concomitant]
     Active Substance: ACETAMINOPHEN
     Dates: start: 20220116, end: 20220116
  4. APIXABAN [Concomitant]
     Active Substance: APIXABAN
     Dates: start: 20220113
  5. AZITHROMYCIN [Concomitant]
     Dates: start: 20220116
  6. CEFTRIAXONE [Concomitant]
     Dates: start: 20220116
  7. DEXAMETHASONE [Concomitant]
     Active Substance: DEXAMETHASONE
     Dates: start: 20220115
  8. DILTIAZEM [Concomitant]
     Dates: start: 20220113
  9. METOPROLOL SUCCINATE [Concomitant]
     Active Substance: METOPROLOL SUCCINATE
     Dates: start: 20220113

REACTIONS (5)
  - Aspartate aminotransferase increased [None]
  - Alanine aminotransferase increased [None]
  - Blood creatinine increased [None]
  - Breath sounds absent [None]
  - Oxygen saturation decreased [None]

NARRATIVE: CASE EVENT DATE: 20220117
